FAERS Safety Report 25486630 (Version 1)
Quarter: 2025Q2

REPORT INFORMATION
  Report Type: Spontaneous
  Country: US (occurrence: US)
  Receive Date: 20250627
  Receipt Date: 20250627
  Transmission Date: 20250717
  Serious: Yes (Death, Life-Threatening, Hospitalization, Other)
  Sender: UNITED THERAPEUTICS
  Company Number: US-UNITED THERAPEUTICS-UNT-2025-021764

PATIENT
  Age: 2 Month
  Sex: Male

DRUGS (4)
  1. REMODULIN [Suspect]
     Active Substance: TREPROSTINIL
     Indication: Pulmonary arterial hypertension
  2. SILDENAFIL [Suspect]
     Active Substance: SILDENAFIL
     Indication: Pulmonary arterial hypertension
  3. BIVALIRUDIN [Concomitant]
     Active Substance: BIVALIRUDIN
     Indication: Product used for unknown indication
  4. NITRIC OXIDE [Concomitant]
     Active Substance: NITRIC OXIDE
     Indication: Product used for unknown indication

REACTIONS (12)
  - Death [Fatal]
  - Shock [Unknown]
  - Hypoxia [Not Recovered/Not Resolved]
  - Cerebral infarction [Unknown]
  - Thrombocytopenia [Unknown]
  - Aortic thrombosis [Unknown]
  - Right ventricular hypertension [Not Recovered/Not Resolved]
  - Pulmonary arterial hypertension [Not Recovered/Not Resolved]
  - Pertussis [Unknown]
  - Hyperleukocytosis [Recovering/Resolving]
  - Cough [Unknown]
  - Therapy non-responder [Unknown]
